FAERS Safety Report 24270764 (Version 3)
Quarter: 2025Q2

REPORT INFORMATION
  Report Type: Spontaneous
  Country: JP (occurrence: JP)
  Receive Date: 20240831
  Receipt Date: 20250401
  Transmission Date: 20250716
  Serious: Yes (Other)
  Sender: GENMAB
  Company Number: JP-GENMAB-2024-01726

PATIENT
  Age: 75 Year
  Sex: Male
  Weight: 49.8 kg

DRUGS (5)
  1. EPKINLY [Suspect]
     Active Substance: EPCORITAMAB-BYSP
     Indication: Diffuse large B-cell lymphoma
     Route: 065
     Dates: start: 20240410, end: 20240410
  2. EPKINLY [Suspect]
     Active Substance: EPCORITAMAB-BYSP
     Route: 065
     Dates: start: 202404, end: 202404
  3. EPKINLY [Suspect]
     Active Substance: EPCORITAMAB-BYSP
     Route: 065
     Dates: start: 202404
  4. LISOCABTAGENE MARALEUCEL [Suspect]
     Active Substance: LISOCABTAGENE MARALEUCEL
  5. PREDNISOLONE [Concomitant]
     Active Substance: PREDNISOLONE
     Indication: Premedication
     Dates: start: 20240410, end: 2024

REACTIONS (1)
  - Adenoviral haemorrhagic cystitis [Recovered/Resolved]

NARRATIVE: CASE EVENT DATE: 20240510
